FAERS Safety Report 4742953-8 (Version None)
Quarter: 2005Q3

REPORT INFORMATION
  Report Type: 
  Country: None (occurrence: None)
  Receive Date: 20050804
  Receipt Date: 20050426
  Transmission Date: 20060218
  Serious: No
  Sender: FDA-Public Use
  Company Number: FACT0500385

PATIENT
  Age: 43 Year
  Sex: Female
  Weight: 72.6 kg

DRUGS (4)
  1. FACTIVE [Suspect]
     Indication: RESPIRATORY TRACT INFECTION BACTERIAL
     Dosage: 320MG, ORAL
     Route: 048
     Dates: start: 20050418, end: 20050425
  2. ADVAIR (FLUTICASONE PROPIONATE, SALMETEROL XINAFOATE) [Concomitant]
  3. ACYCLOVIR [Concomitant]
  4. ALBUTEROL [Concomitant]

REACTIONS (2)
  - ARTHRALGIA [None]
  - RASH ERYTHEMATOUS [None]
